FAERS Safety Report 7150902-0 (Version None)
Quarter: 2010Q4

REPORT INFORMATION
  Report Type: 
  Country: None (occurrence: None)
  Receive Date: 20101210
  Receipt Date: 20090824
  Transmission Date: 20110411
  Serious: Yes (Death)
  Sender: FDA-Public Use
  Company Number: ZA-ROCHE-747049

PATIENT

DRUGS (1)
  1. CELLCEPT [Suspect]
     Route: 065

REACTIONS (1)
  - POST PROCEDURAL COMPLICATION [None]
